FAERS Safety Report 11521421 (Version 1)
Quarter: 2015Q3

REPORT INFORMATION
  Report Type: Spontaneous
  Country: US (occurrence: US)
  Receive Date: 20150918
  Receipt Date: 20150918
  Transmission Date: 20151125
  Serious: Yes (Other)
  Sender: FDA-Public Use
  Company Number: US-ROCHE-713167

PATIENT
  Sex: Male

DRUGS (2)
  1. RIBASPHERE [Suspect]
     Active Substance: RIBAVIRIN
     Indication: HEPATITIS C
     Route: 065
  2. PEGASYS [Suspect]
     Active Substance: PEGINTERFERON ALFA-2A
     Indication: HEPATITIS C
     Dosage: FORM: PRE-FILLED SYRINGE
     Route: 065

REACTIONS (10)
  - Hepatic pain [Not Recovered/Not Resolved]
  - Hypersomnia [Unknown]
  - Alopecia [Not Recovered/Not Resolved]
  - Temperature intolerance [Not Recovered/Not Resolved]
  - Asthenia [Unknown]
  - Memory impairment [Not Recovered/Not Resolved]
  - Eye disorder [Unknown]
  - Dry skin [Not Recovered/Not Resolved]
  - Chest pain [Unknown]
  - Decreased appetite [Not Recovered/Not Resolved]
